FAERS Safety Report 4266797-9 (Version None)
Quarter: 2004Q1

REPORT INFORMATION
  Report Type: 
  Country: None (occurrence: None)
  Receive Date: 20040108
  Receipt Date: 20031016
  Transmission Date: 20041129
  Serious: Yes (Other)
  Sender: FDA-Public Use
  Company Number: FR-ROCHE-349444

PATIENT
  Age: 41 Year
  Sex: Female
  Weight: 50 kg

DRUGS (4)
  1. PEGASYS [Suspect]
     Indication: HEPATITIS C
     Dosage: TAKEN WEEKLY
     Route: 058
     Dates: start: 20030729, end: 20031009
  2. REBETOL [Concomitant]
     Indication: HEPATITIS C
     Route: 048
  3. SUSTIVA [Concomitant]
     Route: 048
     Dates: start: 20030601
  4. COMBIVIR [Concomitant]
     Route: 048
     Dates: start: 20030601

REACTIONS (6)
  - C-REACTIVE PROTEIN INCREASED [None]
  - CHOLECYSTITIS ACUTE [None]
  - GALLBLADDER PAIN [None]
  - HAEMOGLOBIN DECREASED [None]
  - INFLAMMATION [None]
  - PLATELET COUNT DECREASED [None]
